FAERS Safety Report 19562744 (Version 2)
Quarter: 2021Q3

REPORT INFORMATION
  Report Type: Report from Study
  Country: DE (occurrence: DE)
  Receive Date: 20210716
  Receipt Date: 20210728
  Transmission Date: 20211014
  Serious: Yes (Other)
  Sender: FDA-Public Use
  Company Number: DE-JNJFOC-20210717072

PATIENT
  Age: 22 Year
  Sex: Female

DRUGS (1)
  1. SPRAVATO [Suspect]
     Active Substance: ESKETAMINE
     Indication: DEPRESSION

REACTIONS (7)
  - Anxiety [Unknown]
  - Feeling abnormal [Unknown]
  - Drug ineffective [Unknown]
  - Hypoaesthesia oral [Unknown]
  - Sensory disturbance [Unknown]
  - Tension [Unknown]
  - Dizziness [Unknown]

NARRATIVE: CASE EVENT DATE: 20210705
